FAERS Safety Report 5066785-9 (Version None)
Quarter: 2006Q3

REPORT INFORMATION
  Report Type: 
  Country: None (occurrence: None)
  Receive Date: 20060801
  Receipt Date: 20060721
  Transmission Date: 20061208
  Serious: Yes (Other)
  Sender: FDA-Public Use
  Company Number: JP-ROCHE-456643

PATIENT
  Sex: Male

DRUGS (2)
  1. TORSEMIDE [Suspect]
     Indication: DRUG USE FOR UNKNOWN INDICATION
     Route: 048
  2. 1 CONCOMITANT DRUG [Suspect]
     Indication: DRUG USE FOR UNKNOWN INDICATION
     Dosage: DRUG REPORTED AS DIGITALIS AND PREPARATIONS
     Route: 048

REACTIONS (3)
  - AKINESIA [None]
  - MYALGIA [None]
  - NEURALGIA [None]
